FAERS Safety Report 17250431 (Version 2)
Quarter: 2020Q1

REPORT INFORMATION
  Report Type: Report from Study
  Country: CA (occurrence: CA)
  Receive Date: 20200109
  Receipt Date: 20200217
  Transmission Date: 20200409
  Serious: Yes (Other)
  Sender: FDA-Public Use
  Company Number: CA-BIOGEN-2020BI00825113

PATIENT
  Age: 62 Year
  Sex: Male

DRUGS (78)
  1. PREGABALIN. [Concomitant]
     Active Substance: PREGABALIN
     Dosage: AT BEDTIME
     Route: 065
     Dates: start: 20191008, end: 20191008
  2. PREGABALIN. [Concomitant]
     Active Substance: PREGABALIN
     Dosage: IN MORNING AND AT BEDTIME
     Route: 065
     Dates: start: 20191009, end: 20191011
  3. PREGABALIN. [Concomitant]
     Active Substance: PREGABALIN
     Dosage: IN MORNING AND AT BEDTIME
     Route: 065
     Dates: start: 20200121
  4. METOPROLOL. [Concomitant]
     Active Substance: METOPROLOL
     Indication: CARDIAC DISORDER
     Dosage: AT BREAKFAST AND DINNER
     Route: 065
     Dates: start: 20180501, end: 20180507
  5. FUROSEMIDE. [Concomitant]
     Active Substance: FUROSEMIDE
     Dosage: AT DINNER
     Route: 065
     Dates: start: 20190730, end: 20190808
  6. JAMP ASA EC [Concomitant]
     Dosage: WITH BREAKFAST (DO NOT CHEW)
     Route: 065
     Dates: start: 20190730, end: 20190808
  7. EMOLAX (JAMP) [Concomitant]
     Indication: LAXATIVE SUPPORTIVE CARE
     Dosage: DISSOLVE 17 GRAMS IN 250 ML OF LIQUID ONCE A DAY IF NEEDED
     Route: 065
     Dates: start: 20190904
  8. PDP AMANTADINE [Concomitant]
     Dosage: IN THE MORNING
     Route: 065
     Dates: start: 20190813, end: 20190814
  9. JAMIESON OMEGA 3 S/GOUT PREV [Concomitant]
     Indication: PRODUCT USED FOR UNKNOWN INDICATION
     Dosage: WITH MEALS
     Route: 065
     Dates: start: 20190503
  10. METOPROLOL. [Concomitant]
     Active Substance: METOPROLOL
     Dosage: 1/2 TABLET WITH BREAKFAST AND DINNER
     Route: 065
     Dates: start: 20200121
  11. DEXILANT [Concomitant]
     Active Substance: DEXLANSOPRAZOLE
     Dosage: IN MORNING
     Route: 065
     Dates: start: 20200121
  12. D-TABS [Concomitant]
     Active Substance: CHOLECALCIFEROL
     Dosage: ALWAYS ON THE SAME DAY (SATURDAY) IN MORNING
     Route: 065
     Dates: start: 20200121
  13. NOVO GESIC [Concomitant]
     Indication: PAIN
     Dosage: IF WITH PAIN OR FEVER
     Route: 065
     Dates: start: 20190808
  14. OCUVITE [Concomitant]
     Active Substance: VITAMINS
     Indication: PRODUCT USED FOR UNKNOWN INDICATION
     Route: 065
     Dates: end: 20190808
  15. DOXYTAB [Concomitant]
     Indication: PRODUCT USED FOR UNKNOWN INDICATION
     Dosage: EVERY 12 HOURS (AT BREAKFAST AND DINNER) FOR 7 DAYS
     Route: 065
     Dates: start: 20190222, end: 20190401
  16. LIPOSIC [Concomitant]
     Active Substance: CARBOMER
     Indication: PRODUCT USED FOR UNKNOWN INDICATION
     Dosage: 1 DROP IN BOTH EYES TWICE A DAY
     Route: 065
     Dates: start: 20190221
  17. BACLOFEN. [Concomitant]
     Active Substance: BACLOFEN
     Indication: PRODUCT USED FOR UNKNOWN INDICATION
     Dosage: 1/4 TABLET TWICE A DAY
     Route: 065
     Dates: start: 20180109, end: 20180117
  18. MACROBID [Concomitant]
     Active Substance: NITROFURANTOIN\NITROFURANTOIN MONOHYDRATE
     Indication: PRODUCT USED FOR UNKNOWN INDICATION
     Dosage: EVERY 12 HOURS WITH MEALS FOR 5 DAYS
     Route: 065
     Dates: start: 20180117, end: 20180123
  19. DULOXETINE. [Concomitant]
     Active Substance: DULOXETINE
     Dosage: IN THE MORNING
     Route: 065
     Dates: start: 20190702, end: 20190708
  20. TYSABRI [Suspect]
     Active Substance: NATALIZUMAB
     Indication: MULTIPLE SCLEROSIS
     Dosage: INFUSED FOR OVER 1 HOUR
     Route: 042
     Dates: start: 20170512, end: 201711
  21. TYSABRI [Suspect]
     Active Substance: NATALIZUMAB
     Route: 042
     Dates: start: 20170927
  22. DEXILANT [Concomitant]
     Active Substance: DEXLANSOPRAZOLE
     Dosage: IN MORNING
     Route: 065
     Dates: start: 20190214, end: 20190220
  23. VITALUX EYE HEALTH [Concomitant]
     Indication: PRODUCT USED FOR UNKNOWN INDICATION
     Dosage: 2 TABLETS ONCE A DAY
     Route: 065
     Dates: start: 20190503, end: 20190508
  24. BACLOFEN. [Concomitant]
     Active Substance: BACLOFEN
     Dosage: 1/4 TABLET 3 TIMES A DAY
     Route: 065
     Dates: start: 20180130, end: 20180201
  25. JAMP VIT D [Concomitant]
     Dosage: ALWAYS ON THE SAME DAY (SATURDAY) IN THE MORNING
     Route: 065
     Dates: start: 20180102, end: 20180108
  26. PREGABALIN. [Concomitant]
     Active Substance: PREGABALIN
     Dosage: IN MORNING
     Route: 065
     Dates: start: 20191008, end: 20191008
  27. PREGABALIN. [Concomitant]
     Active Substance: PREGABALIN
     Dosage: AT BEDTIME
     Route: 065
     Dates: start: 20191012, end: 20191014
  28. SANDOZ PERINDOPRIL [Concomitant]
     Indication: PRODUCT USED FOR UNKNOWN INDICATION
     Dosage: AT BREAKFAST
     Route: 065
     Dates: start: 20190214, end: 20190220
  29. FUROSEMIDE. [Concomitant]
     Active Substance: FUROSEMIDE
     Dosage: AT DINNER
     Route: 065
     Dates: start: 20190514, end: 20190520
  30. DEXILANT [Concomitant]
     Active Substance: DEXLANSOPRAZOLE
     Indication: GASTRIC DISORDER
     Dosage: IN MORNING
     Route: 065
     Dates: start: 20180116, end: 20180122
  31. DEXILANT [Concomitant]
     Active Substance: DEXLANSOPRAZOLE
     Dosage: IN MORNING
     Route: 065
     Dates: start: 20190730, end: 20190808
  32. SULFATRIM [Concomitant]
     Active Substance: SULFAMETHOXAZOLE\TRIMETHOPRIM
     Dosage: 160-800 MG, EVERY 12 HOURS
     Route: 065
     Dates: start: 20190401
  33. SULFATRIM [Concomitant]
     Active Substance: SULFAMETHOXAZOLE\TRIMETHOPRIM
     Dosage: 160-800 MG, EVERY 12 HOURS
     Route: 065
     Dates: start: 20191231
  34. PDP AMANTADINE [Concomitant]
     Indication: PRODUCT USED FOR UNKNOWN INDICATION
     Dosage: IN THE MORNING
     Route: 065
     Dates: start: 20190730, end: 20190808
  35. RIVA AZITHROMYCIN [Concomitant]
     Indication: PRODUCT USED FOR UNKNOWN INDICATION
     Dosage: 2 TABLETS THE FIRST DAY THEN 1 TABLET ONCE A DAY ON DAYS 2 TO 5
     Route: 065
     Dates: start: 20190221, end: 20190222
  36. PREGABALIN. [Concomitant]
     Active Substance: PREGABALIN
     Dosage: IN MORNING
     Route: 065
     Dates: start: 20191012, end: 20191014
  37. METOPROLOL. [Concomitant]
     Active Substance: METOPROLOL
     Dosage: AT BREAKFAST AND DINNER
     Route: 065
     Dates: start: 20190514, end: 20190520
  38. METOPROLOL. [Concomitant]
     Active Substance: METOPROLOL
     Dosage: AT BREAKFAST AND DINNER
     Route: 065
     Dates: start: 20190827, end: 20190902
  39. FUROSEMIDE. [Concomitant]
     Active Substance: FUROSEMIDE
     Dosage: AT BREAKFAST
     Route: 065
     Dates: start: 20180501, end: 20180507
  40. FUROSEMIDE. [Concomitant]
     Active Substance: FUROSEMIDE
     Dosage: AT BREAKFAST
     Route: 065
     Dates: start: 20180508, end: 20180514
  41. FUROSEMIDE. [Concomitant]
     Active Substance: FUROSEMIDE
     Dosage: AT BREAKFAST
     Route: 065
     Dates: start: 20190514, end: 20190520
  42. SULFATRIM [Concomitant]
     Active Substance: SULFAMETHOXAZOLE\TRIMETHOPRIM
     Dosage: 160-800 MG, EVERY 12 HOURS
     Route: 065
     Dates: start: 20190710, end: 20190808
  43. PRO CIPROFLOXACIN [Concomitant]
     Dosage: EVERY 12 HOURS FOR 7 DAYS
     Route: 065
     Dates: start: 20190911, end: 20191003
  44. OCUVITE ADULT [Concomitant]
     Indication: PRODUCT USED FOR UNKNOWN INDICATION
  45. ATORVASTATIN [Concomitant]
     Active Substance: ATORVASTATIN
     Indication: BLOOD CHOLESTEROL
     Dosage: AT BEDTIME
     Route: 065
     Dates: start: 20171107, end: 20171107
  46. TAMIFLU [Concomitant]
     Active Substance: OSELTAMIVIR PHOSPHATE
     Indication: PRODUCT USED FOR UNKNOWN INDICATION
     Route: 065
     Dates: start: 20200111, end: 20200113
  47. TYSABRI [Suspect]
     Active Substance: NATALIZUMAB
     Route: 065
  48. PREGABALIN. [Concomitant]
     Active Substance: PREGABALIN
     Indication: PRODUCT USED FOR UNKNOWN INDICATION
     Dosage: IN MORNING AND AT BEDTIME
     Route: 065
     Dates: start: 20191003, end: 20191008
  49. SANDOZ PERINDOPRIL [Concomitant]
     Dosage: BEFORE BREAKFAST
     Route: 065
     Dates: start: 20200121
  50. METOPROLOL. [Concomitant]
     Active Substance: METOPROLOL
     Dosage: AT BREAKFAST AND DINNER
     Route: 065
     Dates: start: 20190507, end: 20190513
  51. FUROSEMIDE. [Concomitant]
     Active Substance: FUROSEMIDE
     Indication: DIURETIC THERAPY
     Dosage: AT DINNER
     Route: 065
     Dates: start: 20180501, end: 20180507
  52. FUROSEMIDE. [Concomitant]
     Active Substance: FUROSEMIDE
     Dosage: AT DINNER
     Route: 065
     Dates: start: 20190507, end: 20190513
  53. FUROSEMIDE. [Concomitant]
     Active Substance: FUROSEMIDE
     Dosage: AT BREAKFAST
     Route: 065
     Dates: start: 20190507, end: 20190513
  54. DULOXETINE DR (TEVA) [Concomitant]
     Dosage: IN THE MORNING
     Route: 065
     Dates: start: 20200121
  55. JAMP ASA EC [Concomitant]
     Dosage: WITH BREAKFAST (DO NOT CHEW)
     Route: 065
     Dates: start: 20200121
  56. D-TABS [Concomitant]
     Active Substance: CHOLECALCIFEROL
     Indication: OSTEOPOROSIS PROPHYLAXIS
     Dosage: ALWAYS ON THE SAME DAY (SATURDAY) IN MORNING
     Route: 065
     Dates: start: 20190702, end: 20190708
  57. APO METHYLPHENIDATE [Concomitant]
     Indication: PRODUCT USED FOR UNKNOWN INDICATION
     Dosage: IN THE MORNING FOR 14 DAYS FROM 14-17 SEP INCLUSIVE
     Route: 065
     Dates: start: 20190917, end: 20190917
  58. APO METHYLPHENIDATE [Concomitant]
     Dosage: WITH BREAKFAST AND LUNCH
     Route: 065
     Dates: start: 20200121
  59. INVANZ 1G ELAS + PREP [Concomitant]
     Indication: PRODUCT USED FOR UNKNOWN INDICATION
     Dosage: 1 GRAM EVERY 24 HOURS
     Route: 042
     Dates: start: 20200113, end: 20200117
  60. RIVA DULOXETINE [Concomitant]
     Indication: PAIN
     Dosage: IN THE MORNING
     Route: 065
     Dates: start: 20190730, end: 20190808
  61. SULFATRIM [Concomitant]
     Active Substance: SULFAMETHOXAZOLE\TRIMETHOPRIM
     Indication: PRODUCT USED FOR UNKNOWN INDICATION
     Dosage: 80-400 MG, EVERY 12 HOURS
     Route: 065
     Dates: start: 20181025, end: 20181026
  62. JAMP VIT D [Concomitant]
     Indication: OSTEOPOROSIS PROPHYLAXIS
     Dosage: ALWAYS ON THE SAME DAY (SATURDAY) IN THE MORNING
     Route: 065
     Dates: start: 20170926, end: 20171002
  63. DULOXETINE. [Concomitant]
     Active Substance: DULOXETINE
     Indication: PAIN
     Dosage: IN THE MORNING
     Route: 065
     Dates: start: 20180821, end: 20180827
  64. METOPROLOL. [Concomitant]
     Active Substance: METOPROLOL
     Dosage: AT BREAKFAST AND DINNER
     Route: 065
     Dates: start: 20180508, end: 20180514
  65. METOPROLOL. [Concomitant]
     Active Substance: METOPROLOL
     Dosage: AT BREAKFAST AND DINNER
     Route: 065
     Dates: start: 20190730, end: 20190808
  66. FUROSEMIDE. [Concomitant]
     Active Substance: FUROSEMIDE
     Dosage: AT DINNER
     Route: 065
     Dates: start: 20180508, end: 20180514
  67. FUROSEMIDE. [Concomitant]
     Active Substance: FUROSEMIDE
     Dosage: AT BREAKFAST
     Route: 065
     Dates: start: 20190730, end: 20190808
  68. DULOXETINE DR (TEVA) [Concomitant]
     Indication: PAIN
     Dosage: IN THE MORNING
     Route: 065
     Dates: start: 20180102, end: 20180108
  69. JAMP ASA EC [Concomitant]
     Indication: CARDIOVASCULAR DISORDER
     Dosage: WITH BREAKFAST (DO NOT CHEW)
     Route: 065
     Dates: start: 20180102, end: 20180108
  70. JAMP ASA EC [Concomitant]
     Dosage: WITH BREAKFAST (DO NOT CHEW)
     Route: 065
     Dates: start: 20190702, end: 20190708
  71. SULFATRIM [Concomitant]
     Active Substance: SULFAMETHOXAZOLE\TRIMETHOPRIM
     Indication: PRODUCT USED FOR UNKNOWN INDICATION
     Dosage: 160-800 MG, EVERY 12 HOURS
     Route: 065
     Dates: start: 20181026
  72. PRO CIPROFLOXACIN [Concomitant]
     Indication: PRODUCT USED FOR UNKNOWN INDICATION
     Dosage: EVERY 12 HOURS FOR 7 DAYS
     Route: 065
     Dates: start: 20190418
  73. PRO CEFUROXIME [Concomitant]
     Indication: PRODUCT USED FOR UNKNOWN INDICATION
     Dosage: IN THE MORNING AND AT DINNERTIME UNTIL BEDTIME 13 AUG 2019 INCLUSIVE
     Route: 065
     Dates: start: 20190813, end: 20190813
  74. PRO DEXAMETHASONE [Concomitant]
     Indication: PRODUCT USED FOR UNKNOWN INDICATION
     Dosage: 15 TABS ONCE A DAY FOR 3 DAYS
     Route: 065
     Dates: start: 20180105
  75. SANDOZ PERINDOPRIL [Concomitant]
     Dosage: BEFORE BREAKFAST
     Route: 065
     Dates: start: 20190730, end: 20190808
  76. SANDOZ PERINDOPRIL [Concomitant]
     Dosage: IN THE MORNING
     Route: 065
     Dates: start: 20191001, end: 20191003
  77. FUROSEMIDE. [Concomitant]
     Active Substance: FUROSEMIDE
     Dosage: AT BREAKFAST
     Route: 065
     Dates: start: 20200121
  78. PMS NITROFURANTOIN [Concomitant]
     Indication: PRODUCT USED FOR UNKNOWN INDICATION
     Dosage: EVERY 12 HOURS AT BREAKFAST AND DINNER
     Route: 065
     Dates: start: 20180925, end: 20181025

REACTIONS (2)
  - Off label use [Recovered/Resolved]
  - Carcinoma in situ of skin [Recovered/Resolved]

NARRATIVE: CASE EVENT DATE: 20170512
